FAERS Safety Report 7508715-3 (Version None)
Quarter: 2011Q2

REPORT INFORMATION
  Report Type: 
  Country: None (occurrence: None)
  Receive Date: 20110527
  Receipt Date: 20100830
  Transmission Date: 20111010
  Serious: No
  Sender: FDA-Public Use
  Company Number: A0878399A

PATIENT
  Age: 63 Year
  Sex: Female

DRUGS (6)
  1. VENTOLIN [Suspect]
     Indication: ASTHMA
     Dosage: 2PUFF TWICE PER DAY
     Route: 055
     Dates: start: 20090301, end: 20100601
  2. NASACORT [Concomitant]
  3. INTAL [Concomitant]
  4. AZMACORT [Concomitant]
  5. FLOVENT [Suspect]
  6. UNSPECIFIED MEDICATION [Concomitant]

REACTIONS (3)
  - LACERATION [None]
  - WOUND [None]
  - PAIN [None]
